FAERS Safety Report 18593165 (Version 1)
Quarter: 2020Q4

REPORT INFORMATION
  Report Type: Spontaneous
  Country: US (occurrence: US)
  Receive Date: 20201208
  Receipt Date: 20201208
  Transmission Date: 20210114
  Serious: No
  Sender: FDA-Public Use
  Company Number: US-LUNDBECK-DKLU3022806

PATIENT
  Age: 61 Year
  Sex: Female

DRUGS (2)
  1. NORTHERA [Suspect]
     Active Substance: DROXIDOPA
     Indication: ALCOHOLISM
     Route: 048
     Dates: start: 20200827
  2. NORTHERA [Suspect]
     Active Substance: DROXIDOPA
     Indication: ILLNESS

REACTIONS (3)
  - Product use in unapproved indication [Unknown]
  - Blood pressure decreased [Unknown]
  - Product dose omission issue [Unknown]
